FAERS Safety Report 16785464 (Version 1)
Quarter: 2019Q3

REPORT INFORMATION
  Report Type: Spontaneous
  Country: US (occurrence: US)
  Receive Date: 20190909
  Receipt Date: 20190909
  Transmission Date: 20191005
  Serious: No
  Sender: FDA-Public Use
  Company Number: US-MILLICENT HOLDINGS LTD.-MILL20192380

PATIENT
  Age: 78 Year
  Sex: Female

DRUGS (5)
  1. LEVOTHYROXINE. [Concomitant]
     Active Substance: LEVOTHYROXINE
     Indication: PRODUCT USED FOR UNKNOWN INDICATION
     Dosage: UNKNOWN
     Route: 065
  2. FEMRING [Suspect]
     Active Substance: ESTRADIOL ACETATE
     Indication: LIBIDO DECREASED
     Dosage: 0.05 MG/DAY
     Route: 067
  3. METHENAMINE [Concomitant]
     Active Substance: METHENAMINE
     Indication: CYSTITIS
     Dosage: UNKNOWN
     Route: 065
  4. FEMRING [Suspect]
     Active Substance: ESTRADIOL ACETATE
     Dosage: 0.05 MG/DAY
     Route: 067
  5. CARVEDILOL. [Concomitant]
     Active Substance: CARVEDILOL
     Indication: PRODUCT USED FOR UNKNOWN INDICATION
     Dosage: UNKNOWN
     Route: 065

REACTIONS (4)
  - Vaginal discharge [Recovered/Resolved]
  - Product use in unapproved indication [None]
  - Product prescribing error [None]
  - Back pain [Recovered/Resolved]

NARRATIVE: CASE EVENT DATE: 201906
